FAERS Safety Report 12245931 (Version 2)
Quarter: 2017Q4

REPORT INFORMATION
  Report Type: Spontaneous
  Country: US (occurrence: US)
  Receive Date: 20160407
  Receipt Date: 20171024
  Transmission Date: 20180320
  Serious: No
  Sender: FDA-Public Use
  Company Number: US-ACTELION PHARMACEUTICALS US, INC.-A-US2016-133605

PATIENT
  Age: 67 Year
  Sex: Female

DRUGS (15)
  1. CALCIUM MAGNESIUM ZINC [Concomitant]
     Active Substance: CALCIUM\MAGNESIUM\ZINC
  2. VALCHLOR [Suspect]
     Active Substance: MECHLORETHAMINE
     Indication: MYCOSIS FUNGOIDES
     Dosage: DAILY MON-FRI ONLY
     Route: 061
     Dates: start: 20160126
  3. LUTEIN [Concomitant]
     Active Substance: LUTEIN
  4. MULTIVITAMINS, PLAIN [Concomitant]
     Active Substance: VITAMINS
  5. COREG [Concomitant]
     Active Substance: CARVEDILOL
  6. ASPIRIN. [Concomitant]
     Active Substance: ASPIRIN
  7. FOLIC ACID. [Concomitant]
     Active Substance: FOLIC ACID
  8. CHROMIUM PICOLINATE [Concomitant]
     Active Substance: CHROMIUM PICOLINATE
  9. PLAVIX [Concomitant]
     Active Substance: CLOPIDOGREL BISULFATE
  10. VITAMIN B6 [Concomitant]
     Active Substance: PYRIDOXINE HYDROCHLORIDE
  11. VITAMIN D3 [Concomitant]
     Active Substance: CHOLECALCIFEROL
  12. ATORVASTATIN [Concomitant]
     Active Substance: ATORVASTATIN
  13. NEURONTIN [Concomitant]
     Active Substance: GABAPENTIN
  14. SYNTHROID [Concomitant]
     Active Substance: LEVOTHYROXINE SODIUM
  15. FISH OIL [Concomitant]
     Active Substance: FISH OIL

REACTIONS (3)
  - Skin discolouration [Unknown]
  - Skin disorder [Unknown]
  - Therapy non-responder [Unknown]
